FAERS Safety Report 12408597 (Version 1)
Quarter: 2016Q2

REPORT INFORMATION
  Report Type: Report from Study
  Country: FR (occurrence: FR)
  Receive Date: 20160526
  Receipt Date: 20160526
  Transmission Date: 20160815
  Serious: Yes (Hospitalization, Other)
  Sender: FDA-Public Use
  Company Number: FR-ROCHE-1700216

PATIENT
  Age: 13 Year
  Sex: Male
  Weight: 40.1 kg

DRUGS (22)
  1. PARACETAMOL [Concomitant]
     Active Substance: ACETAMINOPHEN
     Indication: PYREXIA
     Route: 065
     Dates: start: 20160130, end: 20160202
  2. MORPHIN [Concomitant]
     Active Substance: MORPHINE
     Indication: PAIN
     Route: 065
     Dates: start: 20160129, end: 20160402
  3. SOLUPRED (FRANCE) [Concomitant]
     Active Substance: PREDNISOLONE
     Route: 065
     Dates: start: 20160224, end: 20160225
  4. SOLUPRED (FRANCE) [Concomitant]
     Active Substance: PREDNISOLONE
     Route: 048
     Dates: start: 20160228, end: 20160229
  5. ATEZOLIZUMAB [Suspect]
     Active Substance: ATEZOLIZUMAB
     Indication: NEOPLASM
     Dosage: MOST RECENT DOSE PRIOR TO EVENT ON 14/JAN/2016.
     Route: 042
     Dates: start: 20160114
  6. PARACETAMOL [Concomitant]
     Active Substance: ACETAMINOPHEN
     Route: 065
     Dates: start: 20160125, end: 20160125
  7. EUPANTOL [Concomitant]
     Active Substance: PANTOPRAZOLE SODIUM
     Dosage: GASTRITIS DUE TO COTICOIDS
     Route: 065
     Dates: start: 20160229
  8. SOLUPRED (FRANCE) [Concomitant]
     Active Substance: PREDNISOLONE
     Route: 048
     Dates: start: 20160226, end: 20160227
  9. GLUCIDION [Concomitant]
     Active Substance: GLUCOSE, LIQUID\POTASSIUM CHLORIDE\SODIUM CHLORIDE
     Indication: DEHYDRATION
     Route: 042
     Dates: start: 20160128, end: 20160130
  10. INEXIUM [Concomitant]
     Active Substance: ESOMEPRAZOLE
     Dosage: GASTRITIS DUE TO COTICOIDS
     Route: 065
     Dates: start: 20160202, end: 20160204
  11. VITAMIN K [Concomitant]
     Active Substance: PHYTONADIONE
     Dosage: LOW PROTHROMBIN LEVEL
     Route: 065
     Dates: start: 20160129, end: 20160204
  12. BACTRIM [Concomitant]
     Active Substance: SULFAMETHOXAZOLE\TRIMETHOPRIM
     Indication: LYMPHOPENIA
     Route: 048
     Dates: start: 20160125, end: 20160127
  13. ACUPAN [Concomitant]
     Active Substance: NEFOPAM HYDROCHLORIDE
     Indication: PAIN
     Route: 065
     Dates: start: 20160125, end: 20160125
  14. VANCOMYCINE [Concomitant]
     Active Substance: VANCOMYCIN
     Indication: PYREXIA
     Route: 042
     Dates: start: 20160130, end: 20160201
  15. ACTISKENAN [Concomitant]
     Active Substance: MORPHINE SULFATE
     Indication: PAIN
     Route: 065
     Dates: start: 20160125, end: 20160129
  16. ATARAX [Concomitant]
     Active Substance: HYDROXYZINE\HYDROXYZINE HYDROCHLORIDE
     Indication: ANXIETY
     Route: 065
     Dates: start: 20160129, end: 20160129
  17. MEDROL [Concomitant]
     Active Substance: METHYLPREDNISOLONE
     Route: 065
     Dates: start: 20160206, end: 20160223
  18. DOLIPRANE [Concomitant]
     Active Substance: ACETAMINOPHEN
     Indication: ABDOMINAL PAIN
     Route: 048
     Dates: start: 20160117, end: 20160119
  19. EFFERALGAN CODEINE [Concomitant]
     Active Substance: ACETAMINOPHEN\CODEINE PHOSPHATE
     Indication: PAIN
     Route: 048
     Dates: start: 20160119, end: 20160128
  20. AMIKACINE [Concomitant]
     Active Substance: AMIKACIN
     Indication: PYREXIA
     Route: 042
     Dates: start: 20160130, end: 20160130
  21. AMIKACINE [Concomitant]
     Active Substance: AMIKACIN
     Indication: PYREXIA
     Route: 042
     Dates: start: 20160131, end: 20160131
  22. MEDROL [Concomitant]
     Active Substance: METHYLPREDNISOLONE
     Indication: NEOPLASM
     Route: 065
     Dates: start: 20160202, end: 20160205

REACTIONS (3)
  - Cholestasis [Recovered/Resolved]
  - Pancreatitis [Recovered/Resolved]
  - Transaminases increased [Recovered/Resolved]

NARRATIVE: CASE EVENT DATE: 20160121
